FAERS Safety Report 15209746 (Version 3)
Quarter: 2018Q3

REPORT INFORMATION
  Report Type: Spontaneous
  Country: US (occurrence: US)
  Receive Date: 20180727
  Receipt Date: 20180905
  Transmission Date: 20181010
  Serious: No
  Sender: FDA-Public Use
  Company Number: US-SA-2018SA196123

PATIENT
  Age: 57 Year
  Sex: Female

DRUGS (1)
  1. LANTUS [Suspect]
     Active Substance: INSULIN GLARGINE
     Indication: DIABETES MELLITUS
     Dosage: 32 U Q HS
     Route: 065
     Dates: start: 2014

REACTIONS (2)
  - Feeling abnormal [Not Recovered/Not Resolved]
  - Hypoglycaemia [Not Recovered/Not Resolved]
